FAERS Safety Report 9750122 (Version 1)
Quarter: 2013Q4

REPORT INFORMATION
  Report Type: Spontaneous
  Country: DE (occurrence: DE)
  Receive Date: 20131212
  Receipt Date: 20131212
  Transmission Date: 20140711
  Serious: No
  Sender: FDA-Public Use
  Company Number: DE-GILEAD-DE-CVT-100056

PATIENT
  Age: 70 Year
  Sex: Male

DRUGS (9)
  1. RANEXA [Suspect]
     Indication: CORONARY ARTERY DISEASE
     Route: 048
     Dates: start: 20091214
  2. APIDRA [Concomitant]
  3. INSUMAN BASAL                      /01428201/ [Concomitant]
  4. METOPROLOL SUCCINATE [Concomitant]
  5. ISOSORBIDE DINITRATE [Concomitant]
  6. ASS [Concomitant]
  7. SIMVASTATIN [Concomitant]
  8. SPIRONOLACTONE [Concomitant]
  9. OMEPRAZOL [Concomitant]

REACTIONS (2)
  - Weight increased [Recovering/Resolving]
  - Blood glucose increased [Recovering/Resolving]
